FAERS Safety Report 12807603 (Version 1)
Quarter: 2016Q4

REPORT INFORMATION
  Report Type: Report from Study
  Country: US (occurrence: US)
  Receive Date: 20161004
  Receipt Date: 20161004
  Transmission Date: 20170207
  Serious: No
  Sender: FDA-Public Use
  Company Number: US-AMGEN-USASP2016001348

PATIENT
  Sex: Female

DRUGS (1)
  1. XGEVA [Suspect]
     Active Substance: DENOSUMAB
     Indication: METASTASES TO BONE
     Dosage: UNK
     Route: 065
     Dates: start: 201409

REACTIONS (6)
  - Pain [Recovered/Resolved]
  - Influenza like illness [Recovered/Resolved]
  - Bone disorder [Unknown]
  - Headache [Unknown]
  - Adverse event [Unknown]
  - Fatigue [Recovered/Resolved]
